FAERS Safety Report 4379059-6 (Version None)
Quarter: 2004Q2

REPORT INFORMATION
  Report Type: 
  Country: None (occurrence: None)
  Receive Date: 20040610
  Receipt Date: 20040602
  Transmission Date: 20050107
  Serious: Yes (Hospitalization)
  Sender: FDA-Public Use
  Company Number: 2004211385FR

PATIENT
  Age: 45 Year
  Sex: Male

DRUGS (5)
  1. XANAX [Suspect]
     Indication: ANXIETY
     Dosage: 0.25 MG, TID, ORAL
     Route: 048
     Dates: start: 20030506, end: 20030920
  2. STABLON (TIANEPTINE) 12.5MG [Suspect]
     Indication: DYSTHYMIC DISORDER
     Dosage: 12.5 MG/DAY, ORAL
     Route: 048
     Dates: start: 20030620, end: 20031010
  3. IXEL (MILNACIPRAN) [Concomitant]
  4. TEGRETOL [Concomitant]
  5. PAROXETINE HCL [Concomitant]

REACTIONS (4)
  - DYSTHYMIC DISORDER [None]
  - ECZEMA [None]
  - LYMPHADENOPATHY [None]
  - PSEUDO LYMPHOMA [None]
